FAERS Safety Report 23156097 (Version 1)
Quarter: 2023Q4

REPORT INFORMATION
  Report Type: Spontaneous
  Country: US (occurrence: US)
  Receive Date: 20231107
  Receipt Date: 20231107
  Transmission Date: 20240109
  Serious: No
  Sender: FDA-Public Use
  Company Number: US-LUNDBECK-DKLU3068280

PATIENT
  Age: 63 Year
  Sex: Female

DRUGS (2)
  1. NORTHERA [Suspect]
     Active Substance: DROXIDOPA
     Indication: Autonomic neuropathy
     Route: 048
     Dates: start: 201908
  2. NORTHERA [Suspect]
     Active Substance: DROXIDOPA
     Route: 048

REACTIONS (2)
  - Heart rate increased [Unknown]
  - Blood pressure increased [Unknown]
